FAERS Safety Report 10012992 (Version 1)
Quarter: 2014Q1

REPORT INFORMATION
  Report Type: Spontaneous
  Country: US (occurrence: US)
  Receive Date: 20140314
  Receipt Date: 20140314
  Transmission Date: 20141002
  Serious: No
  Sender: FDA-Public Use
  Company Number: US-PFIZER INC-2014070808

PATIENT
  Age: 84 Year
  Sex: Female

DRUGS (1)
  1. ADVIL [Suspect]
     Indication: PAIN
     Dosage: UNK, ONCE A DAY
     Route: 048

REACTIONS (2)
  - Drug effect delayed [Unknown]
  - Drug effect decreased [Unknown]
